FAERS Safety Report 6829724-3 (Version None)
Quarter: 2010Q3

REPORT INFORMATION
  Report Type: 
  Country: None (occurrence: None)
  Receive Date: 20100706
  Receipt Date: 20100625
  Transmission Date: 20110219
  Serious: Yes (Disabling, Other)
  Sender: FDA-Public Use
  Company Number: 2010MA000217

PATIENT
  Sex: Female

DRUGS (1)
  1. METOCLOPRAMIDE [Suspect]
     Indication: DUODENOGASTRIC REFLUX
     Dosage: PO
     Route: 048
     Dates: start: 20080801

REACTIONS (7)
  - DEFORMITY [None]
  - INJURY [None]
  - MENTAL DISORDER [None]
  - NERVOUS SYSTEM DISORDER [None]
  - PAIN [None]
  - QUALITY OF LIFE DECREASED [None]
  - TARDIVE DYSKINESIA [None]
